FAERS Safety Report 15672030 (Version 2)
Quarter: 2019Q4

REPORT INFORMATION
  Report Type: Report from Study
  Country: US (occurrence: US)
  Receive Date: 20181129
  Receipt Date: 20191004
  Transmission Date: 20200122
  Serious: No
  Sender: FDA-Public Use
  Company Number: US-TESARO-US-2017TSO03869

PATIENT
  Age: 71 Year
  Sex: Female

DRUGS (6)
  1. NIRAPARIB CAPSULE [Suspect]
     Active Substance: NIRAPARIB
     Indication: OVARIAN CANCER
     Dosage: 300 MG, QD
     Route: 048
     Dates: start: 20171019, end: 201710
  2. NIRAPARIB CAPSULE [Suspect]
     Active Substance: NIRAPARIB
     Dosage: 200 MG, QD
     Route: 048
     Dates: start: 20180119
  3. NIRAPARIB CAPSULE [Suspect]
     Active Substance: NIRAPARIB
     Dosage: 100MG/200MG ALERTERNATING EVERY OTHER DAY
     Route: 048
     Dates: start: 20171201
  4. DOXIL [Concomitant]
     Active Substance: DOXORUBICIN HYDROCHLORIDE
     Indication: OVARIAN CANCER
     Dosage: UNK
  5. AVASTIN (ATORVASTATIN) [Concomitant]
     Indication: OVARIAN CANCER
     Dosage: UNK
  6. NIRAPARIB CAPSULE [Suspect]
     Active Substance: NIRAPARIB
     Dosage: 200 MG, QD AT 9PM W/OUT FOOD
     Route: 048
     Dates: start: 20180619

REACTIONS (11)
  - Sleep apnoea syndrome [Unknown]
  - Asthenia [Recovered/Resolved]
  - Sleep disorder [Unknown]
  - Scan abnormal [Unknown]
  - Myalgia [Recovered/Resolved]
  - Constipation [Not Recovered/Not Resolved]
  - Carbohydrate antigen 125 increased [Recovered/Resolved]
  - Sleep disorder [Recovered/Resolved]
  - Fatigue [Recovered/Resolved]
  - Platelet count decreased [Recovered/Resolved]
  - Inappropriate schedule of product administration [Recovered/Resolved]

NARRATIVE: CASE EVENT DATE: 20171201
